FAERS Safety Report 26129518 (Version 3)
Quarter: 2025Q4

REPORT INFORMATION
  Report Type: Report from Study
  Country: EU (occurrence: EU)
  Receive Date: 20251208
  Receipt Date: 20251221
  Transmission Date: 20260117
  Serious: Yes (Hospitalization)
  Sender: AMGEN
  Company Number: EU-AMGEN-BELNI2025240579

PATIENT
  Age: 31 Year
  Sex: Male

DRUGS (16)
  1. CYSTEAMINE BITARTRATE [Suspect]
     Active Substance: CYSTEAMINE BITARTRATE
     Indication: Cystinosis
     Dosage: 35 MILLIGRAM/KILOGRAM, BID/ CAPSULE, HARD
     Route: 048
     Dates: start: 20170419, end: 20210902
  2. CYSTEAMINE BITARTRATE [Suspect]
     Active Substance: CYSTEAMINE BITARTRATE
     Dosage: 825 MILLIGRAM, BID
     Route: 048
     Dates: start: 20210903
  3. ARANESP [Concomitant]
     Active Substance: DARBEPOETIN ALFA
     Indication: Anaemia
     Dosage: 50 MICROGRAM, Q3WK
     Route: 058
     Dates: start: 202001
  4. CHOLECALCIFEROL [Concomitant]
     Active Substance: CHOLECALCIFEROL
     Indication: Cystinosis
     Dosage: 25000 INTERNATIONAL UNIT, Q2WK
     Dates: start: 202001
  5. CYANOCOBALAMIN\FOLIC ACID\PYRIDOXINE HYDROCHLORIDE [Concomitant]
     Active Substance: CYANOCOBALAMIN\FOLIC ACID\PYRIDOXINE HYDROCHLORIDE
     Indication: Hyperlipidaemia
     Dosage: 1UNK, TID
     Route: 048
     Dates: start: 201902
  6. ATORVASTATIN [Concomitant]
     Active Substance: ATORVASTATIN
     Indication: Hyperlipidaemia
     Dosage: 40 MILLIGRAM, QD
     Route: 048
     Dates: start: 201902
  7. LEVOTHYROXINE [Concomitant]
     Active Substance: LEVOTHYROXINE
     Indication: Cystinosis
     Dosage: 100 MICROGRAM, QD
     Route: 048
     Dates: start: 2014
  8. TACROLIMUS [Concomitant]
     Active Substance: TACROLIMUS
     Indication: Renal transplant
     Dosage: 3 GRAM, QD
     Route: 048
     Dates: start: 199804, end: 20240118
  9. TACROLIMUS [Concomitant]
     Active Substance: TACROLIMUS
     Dosage: 6 MILLIGRAM, QD
     Route: 048
     Dates: start: 20240119
  10. IMURAN [Concomitant]
     Active Substance: AZATHIOPRINE
     Indication: Renal transplant
     Dosage: 100 MILLIGRAM, QD
     Route: 048
     Dates: start: 199804
  11. PREDNISONE [Concomitant]
     Active Substance: PREDNISONE
     Indication: Renal transplant
     Dosage: 4 MILLIGRAM, QD
     Dates: start: 1998
  12. CYSTEAMINE [Concomitant]
     Active Substance: CYSTEAMINE
     Indication: Cystinosis
     Dosage: 2 GTT DROPS(6 TIMES A DAY;)
     Dates: start: 2014
  13. CARBAMAZEPINE [Concomitant]
     Active Substance: CARBAMAZEPINE
     Indication: Nervous system disorder
     Dosage: 800 MILLIGRAM, BID
     Dates: start: 201601
  14. CALCIUM CARBONATE [Concomitant]
     Active Substance: CALCIUM CARBONATE
     Indication: Cystinosis
     Dosage: 500 MILLIGRAM, QD
     Dates: start: 2017
  15. SODIUM BICARBONATE [Concomitant]
     Active Substance: SODIUM BICARBONATE
     Dosage: 500 MILLIGRAM, BID
     Route: 048
     Dates: start: 201905
  16. TACROLIMUS [Concomitant]
     Active Substance: TACROLIMUS
     Dosage: UNK
     Dates: start: 20240119

REACTIONS (1)
  - Suicidal ideation [Recovered/Resolved]

NARRATIVE: CASE EVENT DATE: 20251015
